FAERS Safety Report 5208369-5 (Version None)
Quarter: 2006Q4

REPORT INFORMATION
  Report Type: 
  Country: None (occurrence: None)
  Receive Date: 20061027
  Receipt Date: 20051018
  Transmission Date: 20070319
  Serious: Yes (Hospitalization)
  Sender: FDA-Public Use
  Company Number: HQWYE193124OCT05

PATIENT
  Age: 64 Year
  Sex: Female
  Weight: 63.11 kg

DRUGS (2)
  1. PREMARIN [Suspect]
     Dosage: 0.625 MG 1X PER 1 DAY
     Dates: start: 19750101, end: 19950701
  2. PREMARIN [Suspect]
     Dosage: 0.625 MG 1X PER 1 DAY

REACTIONS (5)
  - BURNING SENSATION [None]
  - CARCINOID TUMOUR OF THE STOMACH [None]
  - DEEP VEIN THROMBOSIS [None]
  - GASTRITIS [None]
  - PHLEBITIS [None]
